FAERS Safety Report 6418544-X (Version None)
Quarter: 2009Q4

REPORT INFORMATION
  Report Type: 
  Country: None (occurrence: None)
  Receive Date: 20091028
  Receipt Date: 20091021
  Transmission Date: 20100525
  Serious: Yes (Other)
  Sender: FDA-Public Use
  Company Number: US-AMGEN-US343264

PATIENT
  Sex: Male
  Weight: 87.1 kg

DRUGS (23)
  1. ROMIPLOSTIM [Suspect]
     Indication: IDIOPATHIC THROMBOCYTOPENIC PURPURA
     Route: 058
     Dates: start: 20071212, end: 20090311
  2. ROMIPLOSTIM [Suspect]
     Dates: start: 20071212, end: 20080102
  3. ROMIPLOSTIM [Suspect]
     Dates: start: 20080109, end: 20080109
  4. ROMIPLOSTIM [Suspect]
     Dates: start: 20080116, end: 20080116
  5. ROMIPLOSTIM [Suspect]
     Dates: start: 20080123, end: 20080123
  6. ROMIPLOSTIM [Suspect]
     Dates: start: 20080131, end: 20080514
  7. ROMIPLOSTIM [Suspect]
     Dates: start: 20080522, end: 20080717
  8. ROMIPLOSTIM [Suspect]
     Dates: start: 20080723, end: 20090311
  9. AMLODIPINE [Concomitant]
     Route: 048
     Dates: start: 20070702
  10. CLARITIN [Concomitant]
     Route: 048
     Dates: start: 20070101, end: 20080723
  11. ACETAMINOPHEN [Concomitant]
     Route: 048
     Dates: start: 20060101, end: 20090408
  12. COENZYME Q10 [Concomitant]
     Route: 048
     Dates: start: 20071001, end: 20071201
  13. MULTI-VITAMINS [Concomitant]
     Route: 048
     Dates: start: 20020101, end: 20080109
  14. HYDROCODONE [Concomitant]
     Route: 048
     Dates: start: 20070101
  15. PRAVASTATIN [Concomitant]
     Route: 048
     Dates: start: 20070701
  16. GLUCOSAMINE [Concomitant]
     Route: 048
     Dates: start: 20080424
  17. TRAMADOL HCL [Concomitant]
     Route: 048
     Dates: start: 20081112, end: 20090128
  18. CELEBREX [Concomitant]
     Route: 048
     Dates: start: 20081231
  19. DECADRON [Concomitant]
     Route: 048
     Dates: start: 20090331, end: 20090407
  20. ATIVAN [Concomitant]
     Route: 048
     Dates: start: 20090407
  21. PROMACTA [Concomitant]
     Route: 048
     Dates: start: 20090316
  22. PROMACTA [Concomitant]
     Route: 048
     Dates: start: 20090331, end: 20090401
  23. IMMUNOGLOBULINS [Concomitant]
     Route: 042
     Dates: start: 20090417

REACTIONS (1)
  - BIOPSY BONE MARROW ABNORMAL [None]
